FAERS Safety Report 18141984 (Version 2)
Quarter: 2020Q3

REPORT INFORMATION
  Report Type: Report from Study
  Country: FR (occurrence: FR)
  Receive Date: 20200812
  Receipt Date: 20200909
  Transmission Date: 20201103
  Serious: Yes (Other)
  Sender: FDA-Public Use
  Company Number: FR-CELGENEUS-FRA-20181103092

PATIENT
  Age: 43 Year
  Sex: Male
  Weight: 84 kg

DRUGS (12)
  1. FOLIC ACID. [Concomitant]
     Active Substance: FOLIC ACID
     Indication: FOLATE DEFICIENCY
     Dosage: 10 MILLIGRAM
     Route: 048
     Dates: start: 1995
  2. VALACICLOVIR [Concomitant]
     Active Substance: VALACYCLOVIR HYDROCHLORIDE
     Indication: INFECTION
     Dosage: 2 GRAM
     Route: 065
  3. LUSPATERCEPT. [Suspect]
     Active Substance: LUSPATERCEPT
     Indication: THALASSAEMIA BETA
     Route: 058
     Dates: start: 20180807, end: 20181116
  4. AMOXICILLIN. [Concomitant]
     Active Substance: AMOXICILLIN
     Indication: INFECTION
     Dosage: 3 GRAM
     Route: 065
     Dates: start: 20180109
  5. HYDROCORTISONE. [Concomitant]
     Active Substance: HYDROCORTISONE
     Indication: ADRENAL INSUFFICIENCY
     Dosage: 15 MILLIGRAM
     Route: 048
     Dates: start: 201612
  6. PARACETAMOL/CODEINE [Concomitant]
     Active Substance: ACETAMINOPHEN\CODEINE PHOSPHATE
     Indication: ADRENAL INSUFFICIENCY
  7. DEFERIPRONE [Concomitant]
     Active Substance: DEFERIPRONE
     Indication: IRON OVERLOAD
     Dosage: 3 GRAM
     Route: 048
     Dates: start: 20111230
  8. DEFERIPRONE [Concomitant]
     Active Substance: DEFERIPRONE
     Indication: ADRENAL INSUFFICIENCY
     Dosage: 3 GRAM
     Route: 048
     Dates: start: 20190221
  9. HYDROXYUREA. [Concomitant]
     Active Substance: HYDROXYUREA
     Indication: THROMBOSIS PROPHYLAXIS
     Dosage: 750 MILLIGRAM
     Route: 048
     Dates: start: 20150331
  10. HYDROXYUREA. [Concomitant]
     Active Substance: HYDROXYUREA
     Indication: ADRENAL INSUFFICIENCY
  11. PARACETAMOL/CODEINE [Concomitant]
     Active Substance: ACETAMINOPHEN\CODEINE PHOSPHATE
     Indication: BACK PAIN
     Dosage: 1000/60
     Route: 048
     Dates: start: 2008
  12. XAGRID [Concomitant]
     Active Substance: ANAGRELIDE HYDROCHLORIDE
     Indication: THROMBOSIS
     Route: 065
     Dates: start: 20180610

REACTIONS (2)
  - Pulmonary embolism [Recovered/Resolved]
  - Thrombophlebitis superficial [Recovered/Resolved]

NARRATIVE: CASE EVENT DATE: 20181107
